FAERS Safety Report 11802166 (Version 1)
Quarter: 2015Q4

REPORT INFORMATION
  Report Type: Report from Study
  Country: US (occurrence: US)
  Receive Date: 20151204
  Receipt Date: 20151204
  Transmission Date: 20160305
  Serious: Yes (Hospitalization)
  Sender: FDA-Public Use
  Company Number: US-009507513-1512USA000447

PATIENT
  Age: 62 Year
  Sex: Male

DRUGS (2)
  1. TEMOZOLOMIDE. [Suspect]
     Active Substance: TEMOZOLOMIDE
     Indication: GLIOBLASTOMA
     Dosage: UNK
     Route: 048
     Dates: start: 200510, end: 200607
  2. PHENYTOIN. [Concomitant]
     Active Substance: PHENYTOIN
     Dosage: UNK
     Dates: start: 200601, end: 200607

REACTIONS (2)
  - Disorientation [Unknown]
  - Hepatitis [Unknown]

NARRATIVE: CASE EVENT DATE: 200608
